FAERS Safety Report 7422984-X (Version None)
Quarter: 2011Q2

REPORT INFORMATION
  Report Type: 
  Country: None (occurrence: None)
  Receive Date: 20110419
  Receipt Date: 20110412
  Transmission Date: 20111010
  Serious: Yes (Other)
  Sender: FDA-Public Use
  Company Number: ES-BRISTOL-MYERS SQUIBB COMPANY-15105463

PATIENT
  Age: 48 Year
  Sex: Male

DRUGS (3)
  1. EFAVIRENZ [Suspect]
     Indication: HIV INFECTION
     Dosage: IN MAR-06 REDUCED TO 400MG/DAY AND IN JUL-2008 FURTHER REDUCED TO 200 MG/DAY
     Route: 048
     Dates: start: 19890101
  2. ZIDOVUDINE [Suspect]
     Indication: HIV INFECTION
     Dates: start: 19890101
  3. LAMIVUDINE [Suspect]
     Indication: HIV INFECTION
     Dates: start: 19890101

REACTIONS (8)
  - MUSCLE SPASMS [None]
  - ANXIETY [None]
  - HYPOAESTHESIA [None]
  - IRRITABILITY [None]
  - DRUG LEVEL INCREASED [None]
  - NIGHTMARE [None]
  - NERVOUSNESS [None]
  - DIZZINESS [None]
